FAERS Safety Report 10486076 (Version 1)
Quarter: 2014Q3

REPORT INFORMATION
  Report Type: Spontaneous
  Country: US (occurrence: None)
  Receive Date: 20140929
  Receipt Date: 20140929
  Transmission Date: 20150326
  Serious: Yes (Other)
  Sender: FDA-Public Use
  Company Number: COL_17928_2014

PATIENT
  Sex: Male

DRUGS (2)
  1. COLGATE BAKING SODA AND PEROXIDE WHITENING BRISK MINT [Suspect]
     Active Substance: SODIUM MONOFLUOROPHOSPHATE
     Indication: PRODUCT USED FOR UNKNOWN INDICATION
     Dosage: PEA SIZED AMOUNT/TWICE A DAY/ ORAL
     Route: 048
     Dates: end: 20140914
  2. COLGATE SPARKLING WHITE CINNAMINT [Suspect]
     Active Substance: SODIUM FLUORIDE
     Indication: PRODUCT USED FOR UNKNOWN INDICATION
     Dosage: PEA SIZED AMOUNT/TWICE A DAY/ ORAL
     Route: 048
     Dates: end: 20140914

REACTIONS (2)
  - Dental caries [None]
  - Expired product administered [None]
